FAERS Safety Report 21842176 (Version 1)
Quarter: 2023Q1

REPORT INFORMATION
  Report Type: Spontaneous
  Country: US (occurrence: None)
  Receive Date: 20230109
  Receipt Date: 20230109
  Transmission Date: 20230418
  Serious: No
  Sender: FDA-Public Use
  Company Number: None

PATIENT
  Age: 73 Year
  Sex: Female
  Weight: 103.06 kg

DRUGS (26)
  1. IBRANCE [Suspect]
     Active Substance: PALBOCICLIB
     Indication: Breast cancer female
     Dosage: OTHER FREQUENCY : 21D ON 7D OFF;?
     Route: 048
  2. ATORVASTATIN [Concomitant]
     Active Substance: ATORVASTATIN
  3. BISOPROLOL [Concomitant]
     Active Substance: BISOPROLOL
  4. CALCIUM CARB-CHOLECALCIFEROL [Concomitant]
  5. CETIRIZINE [Concomitant]
     Active Substance: CETIRIZINE HYDROCHLORIDE
  6. CLONAZEPAM [Concomitant]
     Active Substance: CLONAZEPAM
  7. COLACE [Concomitant]
     Active Substance: DOCUSATE SODIUM
  8. FEMARA [Concomitant]
     Active Substance: LETROZOLE
  9. KETOTIFEN [Concomitant]
     Active Substance: KETOTIFEN
  10. HYDROCORTISONE [Concomitant]
     Active Substance: HYDROCORTISONE
  11. LASIX [Concomitant]
     Active Substance: FUROSEMIDE
  12. LORAZEPAM [Concomitant]
     Active Substance: LORAZEPAM
  13. MECLIZINE [Concomitant]
     Active Substance: MECLIZINE HYDROCHLORIDE
  14. MUCINEX [Concomitant]
     Active Substance: GUAIFENESIN
  15. NARCAN [Concomitant]
     Active Substance: NALOXONE HYDROCHLORIDE
  16. NITROFURANTOIN [Concomitant]
     Active Substance: NITROFURANTOIN
  17. NITROSTAT [Concomitant]
     Active Substance: NITROGLYCERIN
  18. PANTOPRAZOLE [Concomitant]
     Active Substance: PANTOPRAZOLE
  19. PLAVIX [Concomitant]
     Active Substance: CLOPIDOGREL BISULFATE
  20. POTASSIUM CHLORIDE [Concomitant]
     Active Substance: POTASSIUM CHLORIDE
  21. SYSTANE (HYPROMELLOSE 2910 (4000 MPA.S)) [Concomitant]
     Active Substance: HYPROMELLOSE 2910 (4000 MPA.S)
  22. TIZANIDINE [Concomitant]
     Active Substance: TIZANIDINE
  23. ULTRAM [Concomitant]
     Active Substance: TRAMADOL HYDROCHLORIDE
  24. VITAMIN B12 [Concomitant]
     Active Substance: CYANOCOBALAMIN
  25. VOLTAREN [Concomitant]
     Active Substance: DICLOFENAC SODIUM
  26. ZOFRAN [Concomitant]
     Active Substance: ONDANSETRON HYDROCHLORIDE

REACTIONS (2)
  - Blood potassium decreased [None]
  - Urinary tract infection [None]
